FAERS Safety Report 6689011-3 (Version None)
Quarter: 2010Q2

REPORT INFORMATION
  Report Type: 
  Country: None (occurrence: None)
  Receive Date: 20100420
  Receipt Date: 20100409
  Transmission Date: 20101027
  Serious: Yes (Hospitalization, Other)
  Sender: FDA-Public Use
  Company Number: PHHY2009DE42851

PATIENT
  Age: 61 Year
  Sex: Male
  Weight: 67 kg

DRUGS (15)
  1. SANDIMMUNE [Suspect]
     Indication: RENAL TRANSPLANT
     Dosage: 100 MG, BID
     Route: 048
     Dates: start: 20090401
  2. SANDIMMUNE [Suspect]
     Dosage: 85 MG, BID
     Route: 048
     Dates: start: 20090907
  3. CELLCEPT [Suspect]
     Indication: RENAL TRANSPLANT
     Dosage: 750 MG, BID
     Route: 048
     Dates: start: 20090401
  4. CELLCEPT [Suspect]
     Dosage: 250 MG, BID
     Route: 048
  5. ARANESP [Concomitant]
     Indication: NEPHROGENIC ANAEMIA
     Dosage: 30 UG, QD
     Route: 058
     Dates: start: 20090401
  6. ASPIRIN [Concomitant]
     Indication: CARDIOVASCULAR EVENT PROPHYLAXIS
     Dosage: 100 MG, QD
     Route: 048
     Dates: start: 20090401
  7. BISOPROLOL [Concomitant]
     Indication: HYPERTENSION
     Dosage: 2.5 MG, BID
     Route: 048
     Dates: start: 20000101
  8. CALCIMAGON-D3 [Concomitant]
     Indication: OSTEOPENIA
     Dosage: 1 DF, BID
     Route: 048
     Dates: start: 20090401
  9. DECORTIN-H [Concomitant]
     Indication: RENAL TRANSPLANT
     Dosage: 5 MG, QD
     Route: 048
     Dates: start: 20090401
  10. DIGITOXIN TAB [Concomitant]
     Indication: ATRIAL FIBRILLATION
     Dosage: 0.07 MG, QD
     Route: 048
     Dates: end: 20090906
  11. PANTOZOL [Concomitant]
     Indication: PROPHYLAXIS AGAINST GASTROINTESTINAL ULCER
     Dosage: 40 MG, QD
     Dates: start: 20090401
  12. TAMSULOSIN HCL [Concomitant]
     Indication: BENIGN PROSTATIC HYPERPLASIA
     Dosage: 0.4 MG, QD
     Route: 048
     Dates: start: 20090401
  13. TORSEMIDE [Concomitant]
     Indication: HYPERTENSION
     Dosage: 10 MG, QD
     Route: 048
     Dates: start: 20000101
  14. URSO FALK [Concomitant]
     Indication: CHOLANGITIS SCLEROSING
     Dosage: 250 MG, TID
     Route: 048
  15. VALCYTE [Concomitant]
     Indication: ANTIVIRAL PROPHYLAXIS
     Dosage: 450 UNK, QD

REACTIONS (9)
  - ABSCESS [None]
  - ASTHENIA [None]
  - BLOOD CREATININE INCREASED [None]
  - CYTOMEGALOVIRUS INFECTION [None]
  - HAEMORRHAGE [None]
  - HEPATOMEGALY [None]
  - PARVOVIRUS B19 TEST POSITIVE [None]
  - PYREXIA [None]
  - RENAL CYST [None]
